FAERS Safety Report 6660488-2 (Version None)
Quarter: 2010Q1

REPORT INFORMATION
  Report Type: 
  Country: None (occurrence: None)
  Receive Date: 20100331
  Receipt Date: 20100319
  Transmission Date: 20100710
  Serious: Yes (Other)
  Sender: FDA-Public Use
  Company Number: PHHY2010TH11940

PATIENT
  Age: 55 Year
  Sex: Female

DRUGS (4)
  1. ZOMETA [Suspect]
     Indication: METASTASES TO BONE
     Dosage: 4 MG, QMO
     Route: 041
     Dates: start: 20071219, end: 20090107
  2. DEXAMETHASONE [Concomitant]
     Dosage: 10 MG, UNK
     Dates: start: 20071219
  3. FOLIC ACID [Concomitant]
     Dosage: 1 TABLET DAILY
  4. FBC [Concomitant]
     Dosage: 3 TABLETS DAILY

REACTIONS (19)
  - ABSCESS [None]
  - ANAEMIA [None]
  - BONE OPERATION [None]
  - FISTULA [None]
  - GINGIVAL RECESSION [None]
  - GINGIVITIS [None]
  - HIP ARTHROPLASTY [None]
  - INFLAMMATION [None]
  - METASTASES TO BONE [None]
  - MUSCULAR WEAKNESS [None]
  - MUSCULOSKELETAL PAIN [None]
  - OSTEONECROSIS [None]
  - PLATELET COUNT INCREASED [None]
  - PURULENCE [None]
  - RASH PUSTULAR [None]
  - TOOTH AVULSION [None]
  - TOOTH DISORDER [None]
  - TOOTH LOSS [None]
  - TOOTHACHE [None]
